FAERS Safety Report 6965877-4 (Version None)
Quarter: 2010Q3

REPORT INFORMATION
  Report Type: 
  Country: None (occurrence: None)
  Receive Date: 20100903
  Receipt Date: 20100826
  Transmission Date: 20110219
  Serious: No
  Sender: FDA-Public Use
  Company Number: US-US-EMD SERONO, INC.-230163K09USA

PATIENT
  Sex: Female

DRUGS (3)
  1. REBIF [Suspect]
     Indication: MULTIPLE SCLEROSIS
     Route: 058
     Dates: start: 20030101, end: 20070101
  2. REBIF [Suspect]
     Route: 058
     Dates: start: 20080801
  3. BACLOFEN [Concomitant]
     Indication: MUSCLE SPASTICITY
     Dates: start: 20030101

REACTIONS (4)
  - ABNORMAL BEHAVIOUR [None]
  - CATARACT [None]
  - INSOMNIA [None]
  - MULTIPLE SCLEROSIS RELAPSE [None]
